FAERS Safety Report 17368924 (Version 1)
Quarter: 2020Q1

REPORT INFORMATION
  Report Type: Spontaneous
  Country: FR (occurrence: FR)
  Receive Date: 20200204
  Receipt Date: 20200204
  Transmission Date: 20200409
  Serious: Yes (Hospitalization)
  Sender: FDA-Public Use
  Company Number: FR-ASCEND THERAPEUTICS US, LLC-2079818

PATIENT
  Age: 53 Year
  Sex: Female

DRUGS (5)
  1. OESTRODOSE (ESTRADIOL HEMIHYDRATE)?INDICATION FOR USE: HORMONE REPLACE [Suspect]
     Active Substance: ESTRADIOL
     Dates: end: 20200106
  2. PROGESTAN (PROGESTERONE)?INDICATION FOR USE: HORMONE REPLACEMENT THERA [Suspect]
     Active Substance: PROGESTERONE
     Route: 048
     Dates: end: 20200106
  3. ESTROGEL [Suspect]
     Active Substance: ESTRADIOL
     Indication: HORMONE REPLACEMENT THERAPY
     Route: 003
     Dates: end: 20200106
  4. LEVOTHYROX (LEVOTHYROXINE SODIUM)?INDICATION FOR USE: DRUG USE FOR UNK [Concomitant]
  5. METOJECT (METHOTREXATE SODIUM)?INDICATION FOR USE: RHEUMATOID ARTHRITI [Suspect]
     Active Substance: METHOTREXATE SODIUM
     Route: 058
     Dates: end: 20200106

REACTIONS (1)
  - Transient ischaemic attack [Recovered/Resolved]

NARRATIVE: CASE EVENT DATE: 20200106
